FAERS Safety Report 4896245-7 (Version None)
Quarter: 2006Q1

REPORT INFORMATION
  Report Type: 
  Country: None (occurrence: None)
  Receive Date: 20060126
  Receipt Date: 20060118
  Transmission Date: 20060701
  Serious: Yes (Death, Hospitalization)
  Sender: FDA-Public Use
  Company Number: 2005-11-0135

PATIENT
  Sex: Male
  Weight: 77.1115 kg

DRUGS (5)
  1. TEMODAR [Suspect]
     Indication: GLIOBLASTOMA MULTIFORME
     Dosage: 140-180MG* QD ORAL
     Route: 048
     Dates: start: 20050101, end: 20050101
  2. TEMODAR [Suspect]
     Indication: GLIOBLASTOMA MULTIFORME
     Dosage: 140-180MG* QD ORAL
     Route: 048
     Dates: start: 20050101, end: 20050101
  3. TEMODAR [Suspect]
     Indication: GLIOBLASTOMA MULTIFORME
     Dosage: 140-180MG* QD ORAL
     Route: 048
     Dates: start: 20050101, end: 20050101
  4. TEMODAR [Suspect]
     Indication: GLIOBLASTOMA MULTIFORME
     Dosage: 140-180MG* QD ORAL
     Route: 048
     Dates: start: 20050101, end: 20050101
  5. RADIATION THERAPY NO DOSE FORM [Suspect]
     Indication: GLIOBLASTOMA MULTIFORME
     Dosage: X-RAY THERAPY

REACTIONS (9)
  - ABASIA [None]
  - ACTIVITIES OF DAILY LIVING IMPAIRED [None]
  - ASTHENIA [None]
  - BONE MARROW FAILURE [None]
  - CONTUSION [None]
  - DRUG PRESCRIBING ERROR [None]
  - HAEMORRHAGE [None]
  - PNEUMONIA [None]
  - RENAL FAILURE [None]
